FAERS Safety Report 21782636 (Version 3)
Quarter: 2023Q1

REPORT INFORMATION
  Report Type: Report from Study
  Country: DK (occurrence: None)
  Receive Date: 20221227
  Receipt Date: 20230124
  Transmission Date: 20230418
  Serious: Yes (Hospitalization)
  Sender: FDA-Public Use
  Company Number: DK-ROCHE-3250232

PATIENT
  Age: 82 Year
  Sex: Male

DRUGS (13)
  1. RITUXIMAB [Suspect]
     Active Substance: RITUXIMAB
     Indication: Diffuse large B-cell lymphoma
     Dosage: DAY 1, CYCLE 1. 1400 MG S C OR 375 MG/M2 I. V. CYCLES 2-6, LATEST ADMINISTRATION DATE 08/DEC/2022
     Route: 041
     Dates: start: 20221006
  2. POLATUZUMAB VEDOTIN [Suspect]
     Active Substance: POLATUZUMAB VEDOTIN
     Indication: Diffuse large B-cell lymphoma
     Dosage: LATEST ADMINISTRATION DATE 08/DEC/2022
     Route: 042
     Dates: start: 20221006
  3. CYCLOPHOSPHAMIDE [Suspect]
     Active Substance: CYCLOPHOSPHAMIDE
     Indication: Diffuse large B-cell lymphoma
     Dosage: LATEST ADMINISTRATION DATE 08/DEC/2022
     Route: 042
     Dates: start: 20221006
  4. DOXORUBICIN [Suspect]
     Active Substance: DOXORUBICIN
     Indication: Diffuse large B-cell lymphoma
     Dosage: LATEST ADMINISTRATION DATE 08/DEC/2022
     Route: 042
     Dates: start: 20221006
  5. PREDNISONE [Suspect]
     Active Substance: PREDNISONE
     Indication: Diffuse large B-cell lymphoma
     Dosage: DAYS 1-5, CYCLES 1-6?LATEST ADMINISTRATION DATE 12/DEC/2022
     Route: 048
     Dates: start: 20221006
  6. SELEXID [Concomitant]
     Indication: Cystitis
     Route: 065
     Dates: start: 20221215, end: 20221221
  7. DOMPERIDONE [Concomitant]
     Active Substance: DOMPERIDONE
     Indication: Prophylaxis of nausea and vomiting
     Route: 065
     Dates: start: 20221208
  8. SULFAMETHOXAZOLE\TRIMETHOPRIM [Concomitant]
     Active Substance: SULFAMETHOXAZOLE\TRIMETHOPRIM
     Dosage: 400+80 MG, PROPHYLAXIS LUNG INFECTION
     Route: 065
     Dates: start: 20221006, end: 20221221
  9. ACYCLOVIR [Concomitant]
     Active Substance: ACYCLOVIR
     Dosage: PROPHYLAXIS FOR HERPES
     Route: 065
  10. PRAMIPEXOLE [Concomitant]
     Active Substance: PRAMIPEXOLE
     Indication: Restless legs syndrome
     Dosage: 1-2 TABLETS DAILY, AS NEEDED
     Route: 048
     Dates: start: 20211213
  11. OMEPRAZOLE [Concomitant]
     Active Substance: OMEPRAZOLE
     Route: 065
     Dates: start: 20220926
  12. ACETAMINOPHEN [Concomitant]
     Active Substance: ACETAMINOPHEN
     Indication: Pain
     Route: 065
  13. ALLOPURINOL [Concomitant]
     Active Substance: ALLOPURINOL
     Indication: Prophylaxis
     Route: 065
     Dates: start: 20220922

REACTIONS (1)
  - Influenza A virus test positive [Recovered/Resolved]

NARRATIVE: CASE EVENT DATE: 20221221
